FAERS Safety Report 9835907 (Version 1)
Quarter: 2014Q1

REPORT INFORMATION
  Report Type: Spontaneous
  Country: BE (occurrence: BE)
  Receive Date: 20140122
  Receipt Date: 20140122
  Transmission Date: 20141002
  Serious: Yes (Death)
  Sender: FDA-Public Use
  Company Number: BE-WATSON-2014-00265

PATIENT
  Age: 31 Year
  Sex: Male

DRUGS (3)
  1. PREDNISOLONE (UNKNOWN) [Suspect]
     Indication: CARDIAC SARCOIDOSIS
     Dosage: 64 MG, UNKNOWN
     Route: 065
  2. PREDNISOLONE (UNKNOWN) [Suspect]
     Indication: PULMONARY SARCOIDOSIS
  3. CYCLOPHOSPHAMIDE (UNKNOWN) [Suspect]
     Indication: CARDIAC SARCOIDOSIS
     Dosage: UNK
     Route: 065

REACTIONS (4)
  - Septic shock [Fatal]
  - Pseudomonas infection [Fatal]
  - Aspergillus infection [Fatal]
  - Lung infection [Fatal]
